FAERS Safety Report 6110855-0 (Version None)
Quarter: 2009Q1

REPORT INFORMATION
  Report Type: 
  Country: None (occurrence: None)
  Receive Date: 20090309
  Receipt Date: 20090220
  Transmission Date: 20090719
  Serious: Yes (Hospitalization)
  Sender: FDA-Public Use
  Company Number: 8043368

PATIENT
  Age: 64 Year
  Sex: Male
  Weight: 68.9 kg

DRUGS (3)
  1. TUSSIONEX [Suspect]
     Indication: COUGH
     Dosage: 1 DF 2/D PO
     Route: 048
     Dates: start: 20090211, end: 20090217
  2. METFORMIN HCL [Concomitant]
  3. AVELOX [Concomitant]

REACTIONS (3)
  - BLOOD PRESSURE INCREASED [None]
  - COLITIS [None]
  - HEART RATE INCREASED [None]
